FAERS Safety Report 12338957 (Version 1)
Quarter: 2016Q2

REPORT INFORMATION
  Report Type: Spontaneous
  Country: US (occurrence: US)
  Receive Date: 20160505
  Receipt Date: 20160505
  Transmission Date: 20160815
  Serious: No
  Sender: FDA-Public Use
  Company Number: US-PFIZER INC-2016238355

PATIENT
  Sex: Female

DRUGS (1)
  1. PREMARIN [Suspect]
     Active Substance: ESTROGENS, CONJUGATED
     Dosage: 1.25MG TABLET, TAKES 1/2 TABLET, 1X/DAY

REACTIONS (1)
  - Medication residue present [Unknown]

NARRATIVE: CASE EVENT DATE: 20160426
